FAERS Safety Report 4762310-8 (Version None)
Quarter: 2005Q3

REPORT INFORMATION
  Report Type: 
  Country: None (occurrence: None)
  Receive Date: 20050907
  Receipt Date: 20050830
  Transmission Date: 20060218
  Serious: Yes (Hospitalization, Other)
  Sender: FDA-Public Use
  Company Number: US-JNJFOC-20050806833

PATIENT
  Sex: Female
  Weight: 109.77 kg

DRUGS (10)
  1. REMICADE [Suspect]
     Dosage: LAST INFUSION
     Route: 042
  2. REMICADE [Suspect]
     Dosage: 5 VIALS
     Route: 042
  3. REMICADE [Suspect]
     Indication: RHEUMATOID ARTHRITIS
     Dosage: 3 VIALS
     Route: 042
  4. ATROZINE [Concomitant]
  5. PREDNISONE [Concomitant]
  6. ATENOLOL [Concomitant]
  7. WATER PILL [Concomitant]
  8. ASPIRIN [Concomitant]
  9. ALEVE [Concomitant]
  10. ALLOPURINOL [Concomitant]

REACTIONS (5)
  - COUGH [None]
  - DIABETES MELLITUS NON-INSULIN-DEPENDENT [None]
  - KIDNEY INFECTION [None]
  - THERAPEUTIC RESPONSE DECREASED [None]
  - THROMBOSIS [None]
